FAERS Safety Report 4463950-6 (Version None)
Quarter: 2004Q3

REPORT INFORMATION
  Report Type: 
  Country: None (occurrence: None)
  Receive Date: 20040929
  Receipt Date: 20040923
  Transmission Date: 20050211
  Serious: Yes (Other)
  Sender: FDA-Public Use
  Company Number: HQWYE339627SEP04

PATIENT
  Age: 64 Year
  Sex: Female

DRUGS (1)
  1. PREMPRO [Suspect]
     Indication: HORMONE REPLACEMENT THERAPY
     Dosage: ORAL
     Route: 048
     Dates: start: 19950807, end: 20021001

REACTIONS (3)
  - BREAST CANCER METASTATIC [None]
  - METASTASES TO LIVER [None]
  - PHARMACEUTICAL PRODUCT COMPLAINT [None]
